FAERS Safety Report 9356803 (Version 1)
Quarter: 2013Q2

REPORT INFORMATION
  Report Type: Spontaneous
  Country: IT (occurrence: IT)
  Receive Date: 20130619
  Receipt Date: 20130619
  Transmission Date: 20140414
  Serious: Yes (Hospitalization)
  Sender: FDA-Public Use
  Company Number: IT-BRISTOL-MYERS SQUIBB COMPANY-18997924

PATIENT
  Age: 82 Year
  Sex: Female

DRUGS (2)
  1. COUMADIN TABS 5 MG [Suspect]
     Indication: ATRIAL FIBRILLATION
     Dosage: 5MG ?1 DF : 1 UNIT
     Route: 048
     Dates: start: 20130101, end: 20130520
  2. PLAVIX TABS [Suspect]
     Indication: MYOCARDIAL ISCHAEMIA
     Dosage: TAB
     Dates: start: 20130101, end: 20130520

REACTIONS (5)
  - Dieulafoy^s vascular malformation [Unknown]
  - Large intestinal ulcer haemorrhage [Recovered/Resolved]
  - Haemorrhagic anaemia [Recovered/Resolved]
  - International normalised ratio increased [Recovered/Resolved]
  - Overdose [Unknown]
